FAERS Safety Report 17406550 (Version 1)
Quarter: 2020Q1

REPORT INFORMATION
  Report Type: Spontaneous
  Country: US (occurrence: US)
  Receive Date: 20200212
  Receipt Date: 20200212
  Transmission Date: 20200409
  Serious: No
  Sender: FDA-Public Use
  Company Number: US-ALLERGAN-1930921US

PATIENT
  Sex: Male

DRUGS (2)
  1. KRATOM [Concomitant]
     Active Substance: HERBALS\MITRAGYNINE
     Indication: PAIN
     Route: 048
  2. VIIBRYD [Suspect]
     Active Substance: VILAZODONE HYDROCHLORIDE
     Indication: PRODUCT USED FOR UNKNOWN INDICATION
     Dosage: UNK
     Route: 048

REACTIONS (2)
  - Hyperhidrosis [Recovered/Resolved]
  - Palpitations [Recovered/Resolved]
